FAERS Safety Report 5814479-1 (Version None)
Quarter: 2008Q3

REPORT INFORMATION
  Report Type: 
  Country: None (occurrence: None)
  Receive Date: 20080718
  Receipt Date: 20080708
  Transmission Date: 20090109
  Serious: Yes (Other)
  Sender: FDA-Public Use
  Company Number: FR-JNJFOC-20080605450

PATIENT
  Sex: Male

DRUGS (10)
  1. REMICADE [Suspect]
  2. REMICADE [Suspect]
  3. REMICADE [Suspect]
  4. REMICADE [Suspect]
  5. REMICADE [Suspect]
  6. REMICADE [Suspect]
  7. REMICADE [Suspect]
     Indication: ANKYLOSING SPONDYLITIS
     Dosage: TREATED FOR ONE YEAR WITH ^SPECTACULAR^ EFFECTS.
  8. COAPROVEL [Concomitant]
     Dosage: 1 CAP EVERY DAY
  9. DOLIPRANE [Concomitant]
     Dosage: 2 TABLETS EVERY DAY
  10. KARDEGIC [Concomitant]
     Dosage: 1 TABLET EVERY DAY

REACTIONS (2)
  - INFLAMMATION [None]
  - LEUKOCYTOSIS [None]
